FAERS Safety Report 5639167-6 (Version None)
Quarter: 2008Q1

REPORT INFORMATION
  Report Type: 
  Country: None (occurrence: None)
  Receive Date: 20080131
  Receipt Date: 20071017
  Transmission Date: 20080703
  Serious: Yes (Hospitalization)
  Sender: FDA-Public Use
  Company Number: 163-21880-07100957

PATIENT
  Age: 74 Year
  Sex: Male
  Weight: 76.2043 kg

DRUGS (6)
  1. REVLIMID [Suspect]
     Indication: PROSTATE CANCER
     Dosage: 25 MG, QD, ORAL
     Route: 048
     Dates: start: 20070913, end: 20071014
  2. DOCETAXEL [Suspect]
     Indication: PROSTATE CANCER
     Dosage: 75MG/M2, Q3W, INTRAVENOUS
     Route: 042
     Dates: start: 20070913, end: 20071004
  3. PREDNISONE TAB [Concomitant]
  4. DEXAMETHASONE TAB [Concomitant]
  5. TETRACYCLINE [Concomitant]
  6. PERCOCET [Concomitant]

REACTIONS (1)
  - ARTHRALGIA [None]
